FAERS Safety Report 13797782 (Version 2)
Quarter: 2017Q3

REPORT INFORMATION
  Report Type: Spontaneous
  Country: JP (occurrence: JP)
  Receive Date: 20170727
  Receipt Date: 20170907
  Transmission Date: 20171127
  Serious: Yes (Life-Threatening, Hospitalization, Other)
  Sender: FDA-Public Use
  Company Number: JP-009507513-1609JPN012649

PATIENT
  Age: 40 Year
  Sex: Female
  Weight: 42 kg

DRUGS (5)
  1. ULTIVA [Suspect]
     Active Substance: REMIFENTANIL HYDROCHLORIDE
     Indication: GENERAL ANAESTHESIA
     Dosage: UNK
     Route: 041
     Dates: start: 20160920, end: 20160920
  2. ESLAX INTRAVENOUS 25MG/2.5ML [Suspect]
     Active Substance: ROCURONIUM BROMIDE
     Indication: NEUROMUSCULAR BLOCKING THERAPY
     Dosage: 40 MG, QD
     Route: 041
     Dates: start: 20160920, end: 20160920
  3. DIPRIVAN [Suspect]
     Active Substance: PROPOFOL
     Indication: GENERAL ANAESTHESIA
     Dosage: UNK
     Route: 041
     Dates: start: 20160920, end: 20160920
  4. EPHEDRINE HYDROCHLORIDE [Concomitant]
     Active Substance: EPHEDRINE HYDROCHLORIDE
     Indication: ANAPHYLACTIC SHOCK
     Dosage: UNK
     Route: 051
     Dates: start: 20160920
  5. BOSMIN (EPINEPHRINE) [Concomitant]
     Indication: ANAPHYLACTIC SHOCK
     Dosage: 0.1 %, UNK
     Route: 042
     Dates: start: 20160920

REACTIONS (2)
  - Anaphylactic shock [Recovered/Resolved]
  - Ventricular tachycardia [Recovered/Resolved]

NARRATIVE: CASE EVENT DATE: 20160920
